FAERS Safety Report 7177993 (Version 4)
Quarter: 2013Q3

REPORT INFORMATION
  Report Type: Spontaneous
  Country: US (occurrence: US)
  Receive Date: 20091116
  Receipt Date: 20130924
  Transmission Date: 20140515
  Serious: Yes (Other)
  Sender: FDA-Public Use
  Company Number: US-BAYER-200939163NA

PATIENT
  Age: 70 Year
  Sex: Male
  Weight: 107 kg

DRUGS (27)
  1. MAGNEVIST [Suspect]
     Indication: NUCLEAR MAGNETIC RESONANCE IMAGING
     Dates: start: 20060607, end: 20060607
  2. OMNISCAN [Suspect]
     Indication: NUCLEAR MAGNETIC RESONANCE IMAGING
  3. OPTIMARK [Suspect]
     Indication: NUCLEAR MAGNETIC RESONANCE IMAGING
     Dates: start: 20060816, end: 20060816
  4. MULTIHANCE [GADOBENIC ACID MEGLUMINE] [Suspect]
     Indication: NUCLEAR MAGNETIC RESONANCE IMAGING
  5. PROHANCE [GADOTERIDOL] [Suspect]
     Indication: NUCLEAR MAGNETIC RESONANCE IMAGING
  6. EPOGEN [Concomitant]
     Indication: ANAEMIA
     Dosage: 15000 U (DAILY DOSE), ,
     Dates: start: 20051110, end: 20051112
  7. FERROUS SULPHATE [Concomitant]
     Dates: start: 20060602
  8. LASIX [Concomitant]
     Indication: FLUID RETENTION
     Dosage: 20 MG (DAILY DOSE), QD,
     Dates: start: 20040416
  9. LASIX [Concomitant]
     Indication: BLOOD PRESSURE ABNORMAL
  10. PRANDIN [Concomitant]
  11. LANTUS [Concomitant]
     Dosage: 25 U (DAILY DOSE), QD,
  12. COREG [Concomitant]
     Indication: CARDIAC FAILURE CHRONIC
     Dates: start: 20040416
  13. ZETIA [Concomitant]
     Dosage: 12 MG (DAILY DOSE), QD,
     Dates: start: 20040416
  14. ASPIRIN [Concomitant]
     Indication: ANTIPLATELET THERAPY
     Dosage: 81 MG (DAILY DOSE), QD,
     Dates: start: 1999
  15. INSULIN MIXTARD HUMAN [INSULIN HUMAN,INSULIN HUMAN INJECTION, ISOP [Concomitant]
  16. VASOTEC [Concomitant]
  17. NEPHROCAPS [Concomitant]
     Dosage: 1 DF (DAILY DOSE), QD,
     Dates: start: 20060602
  18. IMDUR [Concomitant]
  19. PHOSLO [Concomitant]
     Dates: start: 20060602
  20. INVANZ [Concomitant]
     Dosage: 6 WEEKS
     Dates: start: 20060602
  21. VANCOMYCIN [Concomitant]
     Dosage: WITH THE NEXT 7 HEMODIALYSIS SESSIONS
  22. SOLU-MEDROL [Concomitant]
     Route: 042
  23. AVANDIA [Concomitant]
     Dates: start: 2004
  24. METFORMIN [Concomitant]
  25. MAVIK [Concomitant]
     Dates: start: 2004, end: 2005
  26. NOVOLIN 70/30 INNOLET [Concomitant]
  27. SOLIVITO N [VIT C,VIT H,B12,B9,B3,PANTOTHENIC AC,B6,B2,B1 HCL] [Concomitant]
     Dosage: 1 DF (DAILY DOSE), QD,
     Dates: start: 20060602

REACTIONS (19)
  - Nephrogenic systemic fibrosis [Not Recovered/Not Resolved]
  - Bone pain [Not Recovered/Not Resolved]
  - Arthralgia [Not Recovered/Not Resolved]
  - Muscular weakness [Not Recovered/Not Resolved]
  - Eye disorder [Not Recovered/Not Resolved]
  - Rash macular [Not Recovered/Not Resolved]
  - Skin tightness [Not Recovered/Not Resolved]
  - Pain in extremity [Not Recovered/Not Resolved]
  - Pain [Not Recovered/Not Resolved]
  - General physical health deterioration [Not Recovered/Not Resolved]
  - Deformity [Not Recovered/Not Resolved]
  - Scar [Not Recovered/Not Resolved]
  - Scab [Not Recovered/Not Resolved]
  - Dermatitis bullous [Not Recovered/Not Resolved]
  - Muscular weakness [Not Recovered/Not Resolved]
  - Oedema peripheral [Not Recovered/Not Resolved]
  - Skin induration [Not Recovered/Not Resolved]
  - Pain in extremity [Not Recovered/Not Resolved]
  - Joint range of motion decreased [Not Recovered/Not Resolved]
